FAERS Safety Report 7969758-9 (Version None)
Quarter: 2011Q4

REPORT INFORMATION
  Report Type: 
  Country: None (occurrence: None)
  Receive Date: 20111121
  Receipt Date: 20110901
  Transmission Date: 20120403
  Serious: No
  Sender: FDA-Public Use
  Company Number: 1000023413

PATIENT
  Age: 65 Year
  Sex: Female

DRUGS (6)
  1. LORAZEPAM [Concomitant]
  2. VIMOVO [Suspect]
     Indication: MYALGIA
     Dates: start: 20110831
  3. VIMOVO [Suspect]
     Indication: PAIN IN EXTREMITY
     Dates: start: 20110831
  4. SKELAXIN (METAXLONE) (METAXLONE) [Concomitant]
  5. VIIBRYD [Suspect]
     Indication: DEPRESSION
     Dosage: 10 MG (10 MG,1 IN 1 D),ORAL
     Route: 048
     Dates: start: 20110831
  6. SEROQUEL (QUETIAPINE FUMARATE) (QUETIAPINE FUMARATE) [Concomitant]

REACTIONS (1)
  - INSOMNIA [None]
